FAERS Safety Report 22622151 (Version 1)
Quarter: 2023Q2

REPORT INFORMATION
  Report Type: Spontaneous
  Country: FR (occurrence: FR)
  Receive Date: 20230620
  Receipt Date: 20230620
  Transmission Date: 20230721
  Serious: Yes (Death, Other)
  Sender: FDA-Public Use
  Company Number: None

PATIENT
  Age: 77 Year
  Sex: Female
  Weight: 55 kg

DRUGS (3)
  1. KEYTRUDA [Suspect]
     Active Substance: PEMBROLIZUMAB
     Indication: Non-small cell lung cancer stage IV
     Dosage: 200 MILLIGRAM, Q3W, C1
     Route: 042
     Dates: start: 20230411, end: 20230411
  2. PEMETREXED [Suspect]
     Active Substance: PEMETREXED
     Indication: Non-small cell lung cancer stage IV
     Dosage: 760 MILLIGRAM, Q3W, C1
     Route: 042
     Dates: start: 20230411, end: 20230411
  3. CARBOPLATIN [Suspect]
     Active Substance: CARBOPLATIN
     Indication: Non-small cell lung cancer stage IV
     Dosage: 430 MILLIGRAM, Q3W, C1
     Route: 042
     Dates: start: 20230411, end: 20230411

REACTIONS (1)
  - Myocarditis [Fatal]

NARRATIVE: CASE EVENT DATE: 20230502
